FAERS Safety Report 15077217 (Version 7)
Quarter: 2019Q1

REPORT INFORMATION
  Report Type: Report from Study
  Country: US (occurrence: US)
  Receive Date: 20180627
  Receipt Date: 20190221
  Transmission Date: 20190417
  Serious: Yes (Hospitalization, Other)
  Sender: FDA-Public Use
  Company Number: US-ACTELION-A-US2018-173933

PATIENT
  Age: 33 Year
  Sex: Female

DRUGS (27)
  1. OPSUMIT [Suspect]
     Active Substance: MACITENTAN
     Indication: PULMONARY ARTERIAL HYPERTENSION
     Dosage: 10 MG, QD
     Route: 048
     Dates: start: 20180505
  2. BUMETANIDE. [Concomitant]
     Active Substance: BUMETANIDE
  3. NARCAN [Concomitant]
     Active Substance: NALOXONE HYDROCHLORIDE
  4. OMEGA 3 FISH OIL [Concomitant]
     Active Substance: FISH OIL\OMEGA-3 FATTY ACIDS
  5. OXYGEN. [Concomitant]
     Active Substance: OXYGEN
     Dosage: (BASELINE) NOCTURNAL
  6. DIAZEPAM. [Concomitant]
     Active Substance: DIAZEPAM
  7. MAGNESIUM OXIDE. [Concomitant]
     Active Substance: MAGNESIUM OXIDE
  8. SPIRONOLACTONE. [Concomitant]
     Active Substance: SPIRONOLACTONE
  9. OXYCODONE [Concomitant]
     Active Substance: OXYCODONE
  10. ATENOLOL. [Concomitant]
     Active Substance: ATENOLOL
  11. MEDROXYPROGESTERONE [Concomitant]
     Active Substance: MEDROXYPROGESTERONE
  12. VITAMIN D3 [Concomitant]
     Active Substance: CHOLECALCIFEROL
  13. CALCIUM CARBONATE. [Concomitant]
     Active Substance: CALCIUM CARBONATE
  14. GABAPENTIN. [Concomitant]
     Active Substance: GABAPENTIN
  15. MIDODRINE [Concomitant]
     Active Substance: MIDODRINE
  16. PANTOPRAZOLE [Concomitant]
     Active Substance: PANTOPRAZOLE
  17. CLIMARA [Concomitant]
     Active Substance: ESTRADIOL
  18. MONTELUKAST [Concomitant]
     Active Substance: MONTELUKAST SODIUM
  19. SILDENAFIL. [Concomitant]
     Active Substance: SILDENAFIL
  20. ESGIC [Concomitant]
     Active Substance: ACETAMINOPHEN\BUTALBITAL\CAFFEINE
  21. CETIRIZINE [Concomitant]
     Active Substance: CETIRIZINE HYDROCHLORIDE
  22. OXYGEN. [Concomitant]
     Active Substance: OXYGEN
     Dosage: 3 L, AT HOME
  23. OLANZAPINE. [Concomitant]
     Active Substance: OLANZAPINE
  24. PREDNISONE. [Concomitant]
     Active Substance: PREDNISONE
  25. DULOXETINE. [Concomitant]
     Active Substance: DULOXETINE
  26. LEVOTHYROXINE. [Concomitant]
     Active Substance: LEVOTHYROXINE
  27. MVI [Concomitant]
     Active Substance: VITAMINS

REACTIONS (27)
  - Blood potassium decreased [Unknown]
  - Blood creatinine increased [Unknown]
  - Blood sodium decreased [Unknown]
  - Fluid overload [Recovering/Resolving]
  - Blood pressure decreased [Unknown]
  - Hypokalaemia [Unknown]
  - Pyrexia [Recovered/Resolved]
  - Hypovolaemia [Unknown]
  - Vomiting [Unknown]
  - Chest discomfort [Unknown]
  - Condition aggravated [Unknown]
  - Hospitalisation [Unknown]
  - Syncope [Unknown]
  - Dehydration [Unknown]
  - Oxygen saturation decreased [Recovering/Resolving]
  - Chest pain [Unknown]
  - Nausea [Unknown]
  - Oropharyngeal pain [Recovered/Resolved]
  - Muscle spasms [Unknown]
  - Dyspnoea [Recovering/Resolving]
  - Migraine [Recovering/Resolving]
  - Acute kidney injury [Unknown]
  - Dizziness [Unknown]
  - Pulmonary hypertension [Unknown]
  - Palpitations [Unknown]
  - Fatigue [Unknown]
  - Diarrhoea [Unknown]

NARRATIVE: CASE EVENT DATE: 2018
